FAERS Safety Report 13302722 (Version 1)
Quarter: 2017Q1

REPORT INFORMATION
  Report Type: Spontaneous
  Country: US (occurrence: US)
  Receive Date: 20170307
  Receipt Date: 20170307
  Transmission Date: 20170428
  Serious: Yes (Hospitalization)
  Sender: FDA-Public Use
  Company Number: US-SIGMAPHARM LABORATORIES, LLC-2017SIG00018

PATIENT
  Age: 28 Year
  Sex: Female

DRUGS (2)
  1. GRISEOFULVIN. [Suspect]
     Active Substance: GRISEOFULVIN
     Indication: ONYCHOMYCOSIS
     Dosage: 500 MG, 1X/DAY
     Route: 065
  2. IBUPROFEN. [Concomitant]
     Active Substance: IBUPROFEN
     Dosage: 200 MG, TWICE
     Route: 065

REACTIONS (3)
  - Acute kidney injury [Recovering/Resolving]
  - Hypoalbuminaemia [Recovering/Resolving]
  - Focal segmental glomerulosclerosis [Recovering/Resolving]
